FAERS Safety Report 17855359 (Version 1)
Quarter: 2020Q2

REPORT INFORMATION
  Report Type: Report from Study
  Country: US (occurrence: US)
  Receive Date: 20200603
  Receipt Date: 20200603
  Transmission Date: 20200714
  Serious: Yes (Other)
  Sender: FDA-Public Use
  Company Number: US-SA-2020SA139396

PATIENT

DRUGS (1)
  1. ALGLUCOSIDASE ALFA [Suspect]
     Active Substance: ALGLUCOSIDASE ALFA
     Indication: GLYCOGEN STORAGE DISEASE TYPE II
     Dosage: 1900 MG, QOW
     Route: 042
     Dates: start: 20100810

REACTIONS (2)
  - Blood pressure decreased [Recovering/Resolving]
  - Loss of consciousness [Recovering/Resolving]

NARRATIVE: CASE EVENT DATE: 20200521
